FAERS Safety Report 10907135 (Version 1)
Quarter: 2015Q1

REPORT INFORMATION
  Report Type: Spontaneous
  Country: US (occurrence: None)
  Receive Date: 20150309
  Receipt Date: 20150309
  Transmission Date: 20150721
  Serious: No
  Sender: FDA-Public Use
  Company Number: None

PATIENT
  Age: 81 Year
  Sex: Female
  Weight: 47.6 kg

DRUGS (6)
  1. ZYDELIG [Suspect]
     Active Substance: IDELALISIB
     Indication: LYMPHOMA
     Route: 048
     Dates: start: 20150101, end: 20150224
  2. TRIAMCINOLONE [Concomitant]
     Active Substance: TRIAMCINOLONE
  3. HYDROCORTISONE CREAM [Concomitant]
     Active Substance: HYDROCORTISONE
  4. ZYDELIG [Suspect]
     Active Substance: IDELALISIB
     Indication: DISEASE RECURRENCE
     Route: 048
     Dates: start: 20150101, end: 20150224
  5. AMLODIPINE [Concomitant]
     Active Substance: AMLODIPINE BESYLATE
  6. VITAMIN D3 [Concomitant]
     Active Substance: CHOLECALCIFEROL

REACTIONS (6)
  - Psoriasis [None]
  - Lymphadenopathy [None]
  - Pyrexia [None]
  - Disease progression [None]
  - Diarrhoea [None]
  - Immune reconstitution inflammatory syndrome [None]

NARRATIVE: CASE EVENT DATE: 20150302
